FAERS Safety Report 4703112-8 (Version None)
Quarter: 2005Q2

REPORT INFORMATION
  Report Type: 
  Country: None (occurrence: None)
  Receive Date: 20050629
  Receipt Date: 20050607
  Transmission Date: 20051028
  Serious: Yes (Death, Life-Threatening, Hospitalization, Disabling, Other)
  Sender: FDA-Public Use
  Company Number: US-GLAXOSMITHKLINE-A0561622A

PATIENT
  Age: 61 Year
  Sex: Male
  Weight: 74.1 kg

DRUGS (2)
  1. VALTREX [Suspect]
     Indication: HERPES ZOSTER
     Dosage: 1G THREE TIMES PER DAY
     Route: 048
     Dates: start: 20050517, end: 20050520
  2. NOT SPECIFIED [Concomitant]

REACTIONS (4)
  - DRUG ADMINISTRATION ERROR [None]
  - PRESCRIBED OVERDOSE [None]
  - RESPIRATORY ARREST [None]
  - SEPSIS [None]
